FAERS Safety Report 8246878 (Version 3)
Quarter: 2013Q1

REPORT INFORMATION
  Report Type: Spontaneous
  Country: JP (occurrence: None)
  Receive Date: 20111109
  Receipt Date: 20130222
  Transmission Date: 20140127
  Serious: Yes (Death, Hospitalization)
  Sender: FDA-Public Use
  Company Number: ADR-2011-11455

PATIENT
  Age: 64 Year
  Sex: Male

DRUGS (1)
  1. GABALON INTRATHECAL [Suspect]
     Indication: MULTIPLE SYSTEM ATROPHY
     Dosage: 65 MCG/DAY INTRATHECAL   ?
     Route: 037

REACTIONS (3)
  - Asthenia [None]
  - Pneumonia [None]
  - Infection [None]
